FAERS Safety Report 14524895 (Version 1)
Quarter: 2018Q1

REPORT INFORMATION
  Report Type: Spontaneous
  Country: US (occurrence: US)
  Receive Date: 20180213
  Receipt Date: 20180213
  Transmission Date: 20180509
  Serious: Yes (Other)
  Sender: FDA-Public Use
  Company Number: US-MALLINCKRODT-T201800457

PATIENT
  Age: 6 Month
  Sex: Female

DRUGS (1)
  1. H.P. ACTHAR [Suspect]
     Active Substance: CORTICOTROPIN
     Indication: INFANTILE SPASMS
     Dosage: 150 UNITS, TWICE A DAY
     Route: 030
     Dates: start: 20171122, end: 201712

REACTIONS (2)
  - Blood pressure increased [Unknown]
  - Hypokalaemia [Unknown]
